FAERS Safety Report 6443850-2 (Version None)
Quarter: 2009Q4

REPORT INFORMATION
  Report Type: 
  Country: None (occurrence: None)
  Receive Date: 20091113
  Receipt Date: 20091030
  Transmission Date: 20100525
  Serious: Yes (Other)
  Sender: FDA-Public Use
  Company Number: 2009AL005542

PATIENT
  Age: 75 Year
  Sex: Female

DRUGS (4)
  1. RANITIDINE [Suspect]
     Indication: GASTRITIS
     Dosage: 150 MG;BID;PO
     Route: 048
     Dates: start: 20090701, end: 20090728
  2. SOMAC [Concomitant]
  3. CENTYL [Concomitant]
  4. TRIOBE [Concomitant]

REACTIONS (6)
  - CONFUSIONAL STATE [None]
  - DRUG INTERACTION [None]
  - EYELID DISORDER [None]
  - HALLUCINATION, VISUAL [None]
  - LISTLESS [None]
  - VISION BLURRED [None]
